FAERS Safety Report 20860166 (Version 2)
Quarter: 2022Q2

REPORT INFORMATION
  Report Type: Spontaneous
  Country: US (occurrence: US)
  Receive Date: 20220523
  Receipt Date: 20220624
  Transmission Date: 20220721
  Serious: No
  Sender: FDA-Public Use
  Company Number: None

PATIENT
  Age: 68 Year
  Sex: Female

DRUGS (3)
  1. REVLIMID [Suspect]
     Active Substance: LENALIDOMIDE
     Indication: Neck pain
     Route: 048
  2. REVLIMID [Suspect]
     Active Substance: LENALIDOMIDE
     Indication: Cervical radiculopathy
  3. REVLIMID [Suspect]
     Active Substance: LENALIDOMIDE
     Dosage: FREQ: TAKE 1 CAPSULE BY MOUTH DAILY ON DAY 1-21 FOLLOWED BY 7 DAYS OFF OF EVERY 28 DAY CHEMOTHERAPY
     Route: 048
     Dates: start: 20200909

REACTIONS (3)
  - Product dose omission issue [Unknown]
  - Seasonal allergy [Recovered/Resolved]
  - Intentional product use issue [Unknown]
